FAERS Safety Report 5671647-X (Version None)
Quarter: 2008Q1

REPORT INFORMATION
  Report Type: 
  Country: None (occurrence: None)
  Receive Date: 20080313
  Receipt Date: 20080228
  Transmission Date: 20080703
  Serious: Yes (Disabling)
  Sender: FDA-Public Use
  Company Number: 2008PV000012

PATIENT
  Age: 17 Year
  Sex: Female

DRUGS (3)
  1. DEPOCYT [Suspect]
     Indication: PROPHYLAXIS
     Dosage: 50 MG; QOM;
  2. METHOTREXATE [Concomitant]
  3. CYTARABINE [Concomitant]

REACTIONS (2)
  - DIPLOPIA [None]
  - ENCEPHALITIS [None]
